FAERS Safety Report 9031165 (Version 2)
Quarter: 2013Q1

REPORT INFORMATION
  Report Type: Spontaneous
  Country: CN (occurrence: CN)
  Receive Date: 20130123
  Receipt Date: 20130128
  Transmission Date: 20140127
  Serious: Yes (Other)
  Sender: FDA-Public Use
  Company Number: CN-ASTRAZENECA-2013SE04237

PATIENT
  Age: 78 Year
  Sex: Female
  Weight: 60 kg

DRUGS (8)
  1. CRESTOR [Suspect]
     Route: 048
  2. CLOPIDOGREL [Concomitant]
  3. HYDROGEN SULFATE [Concomitant]
     Indication: CORONARY ARTERY DISEASE
     Dates: start: 2011
  4. HYDROGEN SULFATE [Concomitant]
     Indication: ATRIAL FIBRILLATION
     Dates: start: 2011
  5. METOPROLOL TARTRATE [Concomitant]
     Indication: CORONARY ARTERY DISEASE
     Dates: start: 2011
  6. METOPROLOL TARTRATE [Concomitant]
     Indication: ATRIAL FIBRILLATION
     Dates: start: 2011
  7. DILTIAZEM HYDROCHLORIDE [Concomitant]
     Indication: CORONARY ARTERY DISEASE
     Dates: start: 2012
  8. DILTIAZEM HYDROCHLORIDE [Concomitant]
     Indication: ATRIAL FIBRILLATION
     Dates: start: 2012

REACTIONS (2)
  - Anuria [Recovered/Resolved]
  - Oliguria [Recovered/Resolved]
